FAERS Safety Report 4872823-6 (Version None)
Quarter: 2005Q4

REPORT INFORMATION
  Report Type: 
  Country: None (occurrence: None)
  Receive Date: 20051201
  Receipt Date: 20050713
  Transmission Date: 20060501
  Serious: No
  Sender: FDA-Public Use
  Company Number: 2005PV000349

PATIENT
  Age: 65 Year
  Sex: Female
  Weight: 62.5964 kg

DRUGS (9)
  1. BYETTA [Suspect]
     Indication: DIABETES MELLITUS NON-INSULIN-DEPENDENT
     Dosage: 5 MCG;BID;SC
     Route: 058
     Dates: start: 20050705, end: 20050709
  2. ATENOLOL [Concomitant]
  3. PLAVIX [Concomitant]
  4. FOLTX [Concomitant]
  5. MULTIVITAMIN [Concomitant]
  6. ACETYLSALICYLIC ACID SRT [Concomitant]
  7. PREVACID [Concomitant]
  8. LIPITOR [Concomitant]
  9. HUMULIN N [Concomitant]

REACTIONS (3)
  - BLOOD GLUCOSE FLUCTUATION [None]
  - NAUSEA [None]
  - VOMITING [None]
